FAERS Safety Report 9594324 (Version 3)
Quarter: 2013Q4

REPORT INFORMATION
  Report Type: Spontaneous
  Country: IT (occurrence: IT)
  Receive Date: 20131004
  Receipt Date: 20131209
  Transmission Date: 20140711
  Serious: Yes (Other)
  Sender: FDA-Public Use
  Company Number: IT-RANBAXY-2013RR-73567

PATIENT
  Age: 3 Year
  Sex: Female

DRUGS (1)
  1. CLARITHROMICINA [Suspect]
     Indication: PHARYNGITIS
     Dosage: 7.5 ML/DAY
     Route: 048
     Dates: start: 20130814, end: 20130816

REACTIONS (2)
  - Angioedema [Recovered/Resolved]
  - Urticaria [Recovered/Resolved]
